FAERS Safety Report 23668390 (Version 2)
Quarter: 2024Q2

REPORT INFORMATION
  Report Type: Spontaneous
  Country: ES (occurrence: ES)
  Receive Date: 20240325
  Receipt Date: 20240401
  Transmission Date: 20240716
  Serious: Yes (Disabling, Other)
  Sender: FDA-Public Use
  Company Number: ES-PFM-2024-01775

PATIENT
  Age: 47 Year
  Sex: Female

DRUGS (7)
  1. BRAFTOVI [Suspect]
     Active Substance: ENCORAFENIB
     Indication: Metastatic malignant melanoma
     Dosage: 450 MG, DAILY
     Route: 065
     Dates: start: 20230330
  2. BRAFTOVI [Suspect]
     Active Substance: ENCORAFENIB
     Dosage: 300 MG, DAILY
     Route: 065
     Dates: start: 202306
  3. BRAFTOVI [Suspect]
     Active Substance: ENCORAFENIB
     Dosage: 225 MG, DAILY
     Route: 065
     Dates: start: 202312, end: 20240307
  4. BRAFTOVI [Suspect]
     Active Substance: ENCORAFENIB
     Dosage: 225 MG, DAILY
     Route: 065
  5. MEKTOVI [Suspect]
     Active Substance: BINIMETINIB
     Indication: Metastatic malignant melanoma
     Dosage: 45 MG, 2X/DAY
     Route: 065
     Dates: start: 20230330
  6. MEKTOVI [Suspect]
     Active Substance: BINIMETINIB
     Dosage: 30 MG, 2X/DAY
     Route: 065
     Dates: start: 202306, end: 20240307
  7. MEKTOVI [Suspect]
     Active Substance: BINIMETINIB
     Dosage: 30 MG, 2X/DAY
     Route: 065

REACTIONS (7)
  - Photophobia [Recovered/Resolved]
  - Eye pain [Recovered/Resolved]
  - Ocular toxicity [Recovered/Resolved]
  - Hepatotoxicity [Recovered/Resolved]
  - Enteritis [Recovered/Resolved]
  - Dry eye [Recovered/Resolved]
  - Pyrexia [Recovered/Resolved]

NARRATIVE: CASE EVENT DATE: 20230601
